FAERS Safety Report 16308865 (Version 1)
Quarter: 2019Q2

REPORT INFORMATION
  Report Type: Spontaneous
  Country: US (occurrence: US)
  Receive Date: 20190514
  Receipt Date: 20190514
  Transmission Date: 20190711
  Serious: Yes (Death, Hospitalization, Other)
  Sender: FDA-Public Use
  Company Number: US-AUROBINDO-AUR-APL-2019-025632

PATIENT

DRUGS (9)
  1. TACROLIMUS. [Suspect]
     Active Substance: TACROLIMUS
     Indication: IMMUNOSUPPRESSION
     Dosage: UNK
     Route: 065
  2. SIROLIMUS. [Concomitant]
     Active Substance: SIROLIMUS
     Indication: IMMUNOSUPPRESSION
     Dosage: UNK
     Route: 065
  3. GANCICLOVIR. [Suspect]
     Active Substance: GANCICLOVIR
     Indication: IMMUNOSUPPRESSION
     Dosage: UNK (14 DAYS)
     Route: 065
  4. IMMUNOGLOBULIN NOS [Concomitant]
     Active Substance: IMMUNE GLOBULIN NOS
     Indication: PRODUCT USED FOR UNKNOWN INDICATION
     Dosage: UNK
     Route: 065
  5. PREDNISONE. [Suspect]
     Active Substance: PREDNISONE
     Dosage: 20 MILLIGRAM, TWO TIMES A DAY
     Route: 065
  6. PREDNISONE. [Suspect]
     Active Substance: PREDNISONE
     Dosage: 2.5 MILLIGRAM, DAILY
     Route: 065
  7. TACROLIMUS. [Suspect]
     Active Substance: TACROLIMUS
     Dosage: 5-8 NG/ML
     Route: 065
  8. PREDNISONE. [Suspect]
     Active Substance: PREDNISONE
     Indication: IMMUNOSUPPRESSION
     Dosage: UNK
     Route: 065
  9. TACROLIMUS. [Suspect]
     Active Substance: TACROLIMUS
     Dosage: 3-5 NG/ML
     Route: 065

REACTIONS (18)
  - Septic shock [Fatal]
  - Cytomegalovirus infection [Unknown]
  - Dermatitis [Unknown]
  - Multiple organ dysfunction syndrome [Fatal]
  - Viral load increased [Unknown]
  - Cytomegalovirus viraemia [Unknown]
  - Pleural effusion [Unknown]
  - Pseudomonas infection [Unknown]
  - Epidermal necrosis [Unknown]
  - Respiratory distress [Unknown]
  - Nephropathy toxic [Unknown]
  - Parainfluenzae virus infection [Unknown]
  - Urinary tract infection bacterial [Unknown]
  - Drug resistance [Unknown]
  - Rash erythematous [Recovering/Resolving]
  - Cytomegalovirus gastroenteritis [Unknown]
  - Graft versus host disease [Unknown]
  - Disease progression [Unknown]
